FAERS Safety Report 9053534 (Version 1)
Quarter: 2013Q1

REPORT INFORMATION
  Report Type: Spontaneous
  Country: US (occurrence: None)
  Receive Date: 20130201
  Receipt Date: 20130201
  Transmission Date: 20140127
  Serious: Yes (Other)
  Sender: FDA-Public Use
  Company Number: None

PATIENT
  Age: 35 Year
  Sex: Female
  Weight: 72.58 kg

DRUGS (1)
  1. MIRENA IUD BAYER [Suspect]
     Indication: CONTRACEPTION
     Dates: start: 20081201, end: 20121127

REACTIONS (6)
  - Vaginal infection [None]
  - Pelvic pain [None]
  - Muscle spasms [None]
  - Menstruation irregular [None]
  - Coital bleeding [None]
  - Device dislocation [None]
